FAERS Safety Report 16597046 (Version 1)
Quarter: 2019Q3

REPORT INFORMATION
  Report Type: Spontaneous
  Country: PT (occurrence: PT)
  Receive Date: 20190719
  Receipt Date: 20190719
  Transmission Date: 20191004
  Serious: Yes (Other)
  Sender: FDA-Public Use
  Company Number: PT-HIKMA PHARMACEUTICALS USA INC.-PT-H14001-19-46072

PATIENT
  Age: 55 Year
  Weight: 73.9 kg

DRUGS (1)
  1. VANCOMICINA HIKMA [Suspect]
     Active Substance: VANCOMYCIN HYDROCHLORIDE
     Indication: ANTIBIOTIC PROPHYLAXIS
     Dosage: 2000MG INTRAPERITONEAL ()
     Route: 033
     Dates: start: 20190616, end: 20190617

REACTIONS (1)
  - Peritoneal effluent leukocyte count increased [Recovered/Resolved]

NARRATIVE: CASE EVENT DATE: 20190617
